FAERS Safety Report 24922642 (Version 2)
Quarter: 2025Q1

REPORT INFORMATION
  Report Type: Report from Study
  Country: US (occurrence: US)
  Receive Date: 20250204
  Receipt Date: 20250206
  Transmission Date: 20250409
  Serious: Yes (Hospitalization, Other)
  Sender: ASTELLAS
  Company Number: US-ASTELLAS-2025-AER-005426

PATIENT
  Age: 42 Year
  Sex: Male

DRUGS (2)
  1. GILTERITINIB [Suspect]
     Active Substance: GILTERITINIB
     Indication: Acute myeloid leukaemia
     Route: 048
     Dates: start: 202406
  2. GILTERITINIB [Suspect]
     Active Substance: GILTERITINIB
     Dosage: UNKNOWN DOSE, ONCE DAILY
     Route: 048

REACTIONS (4)
  - Differentiation syndrome [Unknown]
  - Carditis [Unknown]
  - Oedema [Unknown]
  - Inflammation [Unknown]
